FAERS Safety Report 7530332-X (Version None)
Quarter: 2011Q2

REPORT INFORMATION
  Report Type: 
  Country: None (occurrence: None)
  Receive Date: 20110607
  Receipt Date: 20110524
  Transmission Date: 20111010
  Serious: No
  Sender: FDA-Public Use
  Company Number: US-B.I. PHARMACEUTICALS,INC./RIDGEFIELD-2011-BP-13900BP

PATIENT
  Age: 84 Year
  Sex: Female

DRUGS (7)
  1. TEKTURNA [Concomitant]
     Indication: HYPERTENSION
     Dosage: 300 MG
     Route: 048
  2. CLONIDINE [Concomitant]
     Indication: HYPERTENSION
     Dosage: 0.2 MG
     Route: 048
  3. FUROSEMIDE [Concomitant]
     Indication: HYPERTENSION
     Dosage: 40 MG
     Route: 048
  4. METOPROLOL SUCCINATE [Concomitant]
     Indication: HYPERTENSION
     Route: 048
  5. CLINORIL [Concomitant]
     Indication: OSTEOARTHRITIS
     Route: 048
  6. BENICAR [Concomitant]
     Indication: HYPERTENSION
     Dosage: 20 MG
     Route: 048
  7. PRADAXA [Suspect]
     Indication: ATRIAL FIBRILLATION
     Dosage: 300 MG
     Route: 048
     Dates: start: 20110301, end: 20110416

REACTIONS (3)
  - GINGIVAL BLEEDING [None]
  - CHOKING SENSATION [None]
  - DYSPEPSIA [None]
